FAERS Safety Report 11330480 (Version 1)
Quarter: 2015Q3

REPORT INFORMATION
  Report Type: Spontaneous
  Country: US (occurrence: US)
  Receive Date: 20150803
  Receipt Date: 20150803
  Transmission Date: 20151125
  Serious: Yes (Hospitalization, Other)
  Sender: FDA-Public Use
  Company Number: US-RB PHARMACEUTICALS LIMITED-RB-081665-2015

PATIENT
  Sex: Female

DRUGS (3)
  1. SUBOXONE [Suspect]
     Active Substance: BUPRENORPHINE HYDROCHLORIDE\NALOXONE HYDROCHLORIDE
     Indication: DRUG DEPENDENCE
     Dosage: 2 MG PER DAY
     Route: 065
  2. BUPRENORPHINE/NALOXONE [Suspect]
     Active Substance: BUPRENORPHINE\NALOXONE
     Indication: PAIN MANAGEMENT
     Dosage: 32 MG, UNK
     Route: 065
  3. BUPRENORPHINE/NALOXONE [Suspect]
     Active Substance: BUPRENORPHINE\NALOXONE
     Dosage: 0.5 MG, UNK
     Route: 065

REACTIONS (22)
  - Drug detoxification [Recovered/Resolved]
  - Insomnia [Recovered/Resolved]
  - Vomiting [Recovered/Resolved]
  - Self esteem decreased [Recovered/Resolved]
  - Suicide attempt [Recovered/Resolved]
  - Hyperaesthesia [Recovered/Resolved]
  - Drug ineffective [Recovered/Resolved]
  - Burning sensation [Recovered/Resolved]
  - Drug withdrawal syndrome [Recovered/Resolved]
  - Depression [Recovered/Resolved]
  - Condition aggravated [Recovered/Resolved]
  - Drug tolerance increased [Recovered/Resolved]
  - Malaise [Recovered/Resolved]
  - Feeling abnormal [Recovered/Resolved]
  - Loss of employment [Recovered/Resolved]
  - Asthenia [Recovered/Resolved]
  - Therapeutic response unexpected [Recovered/Resolved]
  - Pain [Recovered/Resolved]
  - Mental disorder [Recovered/Resolved]
  - Off label use [Unknown]
  - Intentional underdose [Unknown]
  - Anxiety [Recovered/Resolved]
